FAERS Safety Report 9152414 (Version 1)
Quarter: 2013Q1

REPORT INFORMATION
  Report Type: Spontaneous
  Country: DE (occurrence: DE)
  Receive Date: 20130308
  Receipt Date: 20130308
  Transmission Date: 20140127
  Serious: Yes (Other)
  Sender: FDA-Public Use
  Company Number: GXKR2013DE001098

PATIENT
  Sex: 0

DRUGS (2)
  1. CLOPIDOGREL [Suspect]
     Dosage: 1 DF, QD
     Route: 065
     Dates: start: 20120729, end: 20121203
  2. ACETYLSALICYLIC ACID [Suspect]
     Dosage: 1 DF, QD
     Route: 065
     Dates: start: 20120729

REACTIONS (1)
  - Gastrointestinal haemorrhage [Recovered/Resolved]
